FAERS Safety Report 9929017 (Version 1)
Quarter: 2014Q1

REPORT INFORMATION
  Report Type: Spontaneous
  Country: US (occurrence: None)
  Receive Date: 20140224
  Receipt Date: 20140224
  Transmission Date: 20141002
  Serious: Yes (Other)
  Sender: FDA-Public Use
  Company Number: FK201400559

PATIENT
  Age: 52 Year
  Sex: Female

DRUGS (5)
  1. LIDOCAINE HYDROCHLORIDE [Suspect]
     Indication: NERVE BLOCK
     Dates: start: 20101019, end: 20101019
  2. DEXAMETHASONE SODIUM PHOSPHATE [Suspect]
     Indication: NERVE BLOCK
     Dates: start: 20101019, end: 20101019
  3. SENSORCAINE [Suspect]
     Indication: NERVE BLOCK
     Dates: start: 20101019, end: 20101019
  4. PROBIOTICS [Concomitant]
  5. VITAMIN B(VITAMIN B COMPLEX) [Concomitant]

REACTIONS (16)
  - Scleral discolouration [None]
  - Vocal cord disorder [None]
  - Pain in extremity [None]
  - Gait disturbance [None]
  - Vomiting [None]
  - Diarrhoea [None]
  - Feeling abnormal [None]
  - Blood urine present [None]
  - Liver injury [None]
  - Mouth injury [None]
  - Gastrointestinal tract irritation [None]
  - Dysphagia [None]
  - Generalised erythema [None]
  - Skin exfoliation [None]
  - Hair texture abnormal [None]
  - Face injury [None]
